FAERS Safety Report 15248204 (Version 1)
Quarter: 2018Q3

REPORT INFORMATION
  Report Type: Spontaneous
  Country: US (occurrence: US)
  Receive Date: 20180807
  Receipt Date: 20180807
  Transmission Date: 20181010
  Serious: No
  Sender: FDA-Public Use
  Company Number: US-BAYER-2018-141124

PATIENT
  Age: 48 Year
  Sex: Male
  Weight: 171.97 kg

DRUGS (1)
  1. MIRALAX [Suspect]
     Active Substance: POLYETHYLENE GLYCOL 3350
     Dosage: 17 G IN WATER OR MILK DOSE
     Route: 048
     Dates: start: 2017

REACTIONS (1)
  - Abdominal rigidity [Unknown]
